FAERS Safety Report 5218213-8 (Version None)
Quarter: 2007Q1

REPORT INFORMATION
  Report Type: 
  Country: None (occurrence: None)
  Receive Date: 20061130
  Receipt Date: 20060919
  Transmission Date: 20070707
  Serious: Yes (Other)
  Sender: FDA-Public Use
  Company Number: US200511001583

PATIENT
  Age: 33 Year
  Sex: Female
  Weight: 90.2 kg

DRUGS (2)
  1. ZYPREXA [Suspect]
     Indication: SLEEP DISORDER
     Dosage: ORAL
     Route: 048
     Dates: start: 20021114
  2. TOPROL-XL [Concomitant]

REACTIONS (5)
  - DIABETIC KETOACIDOSIS [None]
  - DIABETIC NEUROPATHY [None]
  - DIABETIC RETINOPATHY [None]
  - NEUROPATHY [None]
  - WEIGHT INCREASED [None]
